FAERS Safety Report 8966002 (Version 1)
Quarter: 2012Q4

REPORT INFORMATION
  Report Type: 
  Country: US (occurrence: US)
  Receive Date: 20121217
  Receipt Date: 20121217
  Transmission Date: 20130627
  Serious: Yes (Other)
  Sender: FDA-Public Use
  Company Number: US-CELGENEUS-163-21880-12121105

PATIENT
  Sex: Male
  Weight: 83.99 kg

DRUGS (1)
  1. REVLIMID [Suspect]
     Indication: MULTIPLE MYELOMA
     Dosage: 5 Milligram
     Route: 048
     Dates: start: 201210, end: 20121129

REACTIONS (3)
  - Haemorrhage [Unknown]
  - Diarrhoea [Unknown]
  - Rash [Not Recovered/Not Resolved]
